FAERS Safety Report 19201911 (Version 1)
Quarter: 2021Q2

REPORT INFORMATION
  Report Type: Spontaneous
  Country: JP (occurrence: JP)
  Receive Date: 20210430
  Receipt Date: 20210430
  Transmission Date: 20210717
  Serious: Yes (Hospitalization, Other)
  Sender: FDA-Public Use
  Company Number: JP-VALIDUS PHARMACEUTICALS LLC-JP-2021VAL001144

PATIENT

DRUGS (4)
  1. SPIRONOLACTONE. [Suspect]
     Active Substance: SPIRONOLACTONE
     Indication: DIURETIC THERAPY
     Dosage: 50 MG, QD
     Route: 065
  2. FUROSEMIDE. [Suspect]
     Active Substance: FUROSEMIDE
     Indication: DIURETIC THERAPY
     Dosage: 20 MG, QD
     Route: 065
  3. SPIRONOLACTONE. [Suspect]
     Active Substance: SPIRONOLACTONE
     Dosage: MINIMUM DOSAGE
     Route: 065
  4. ESOMEPRAZOLE MAGNESIUM. [Concomitant]
     Active Substance: ESOMEPRAZOLE MAGNESIUM
     Indication: PRODUCT USED FOR UNKNOWN INDICATION
     Dosage: UNK

REACTIONS (10)
  - Disease recurrence [Recovered/Resolved]
  - Electrolyte imbalance [Recovered/Resolved]
  - Altered state of consciousness [Recovering/Resolving]
  - Hepatic encephalopathy [Recovered/Resolved]
  - Hepatic cirrhosis [Unknown]
  - Coma [Recovering/Resolving]
  - Disorientation [Recovered/Resolved]
  - Constipation [Unknown]
  - Dehydration [Unknown]
  - Overdose [Unknown]

NARRATIVE: CASE EVENT DATE: 201704
